FAERS Safety Report 17493412 (Version 1)
Quarter: 2020Q1

REPORT INFORMATION
  Report Type: Spontaneous
  Country: US (occurrence: US)
  Receive Date: 20200221
  Receipt Date: 20200221
  Transmission Date: 20200409
  Serious: No
  Sender: FDA-Public Use
  Company Number: None

PATIENT
  Age: 51 Year
  Sex: Male

DRUGS (1)
  1. XELJANZ [Suspect]
     Active Substance: TOFACITINIB CITRATE
     Indication: COLITIS
     Route: 048
     Dates: start: 20190103

REACTIONS (2)
  - Thrombosis [None]
  - Myocardial infarction [None]

NARRATIVE: CASE EVENT DATE: 20200106
